FAERS Safety Report 22081449 (Version 1)
Quarter: 2023Q1

REPORT INFORMATION
  Report Type: Spontaneous
  Country: US (occurrence: US)
  Receive Date: 20230310
  Receipt Date: 20230310
  Transmission Date: 20230417
  Serious: No
  Sender: FDA-Public Use
  Company Number: US-GSKCCFUS-Case-01646374_AE-92917

PATIENT
  Age: 41 Year
  Sex: Female

DRUGS (1)
  1. NUCALA [Suspect]
     Active Substance: MEPOLIZUMAB
     Indication: Asthma
     Dosage: UNK, SITE OF INJECTION:UPPER LEFT ARM

REACTIONS (6)
  - Blood pressure increased [Recovering/Resolving]
  - Urticaria [Recovering/Resolving]
  - Vision blurred [Recovering/Resolving]
  - Stomatitis [Recovering/Resolving]
  - Peripheral swelling [Recovering/Resolving]
  - Injection site reaction [Recovering/Resolving]

NARRATIVE: CASE EVENT DATE: 20230303
